FAERS Safety Report 18386848 (Version 1)
Quarter: 2020Q4

REPORT INFORMATION
  Report Type: Spontaneous
  Country: FR (occurrence: FR)
  Receive Date: 20201015
  Receipt Date: 20201015
  Transmission Date: 20210114
  Serious: Yes (Life-Threatening)
  Sender: FDA-Public Use
  Company Number: FR-TEVA-2020-FR-1837859

PATIENT
  Age: 15 Year
  Sex: Male
  Weight: 29 kg

DRUGS (1)
  1. AMOXICILLINE [Suspect]
     Active Substance: AMOXICILLIN
     Indication: SEPSIS
     Dosage: 8 GRAM
     Route: 048
     Dates: start: 20191002, end: 20191005

REACTIONS (2)
  - Haematuria [Recovered/Resolved]
  - Acute kidney injury [Recovered/Resolved]

NARRATIVE: CASE EVENT DATE: 20191004
